FAERS Safety Report 6288811-1 (Version None)
Quarter: 2009Q3

REPORT INFORMATION
  Report Type: 
  Country: None (occurrence: None)
  Receive Date: 20090727
  Receipt Date: 20090721
  Transmission Date: 20100115
  Serious: Yes (Other)
  Sender: FDA-Public Use
  Company Number: CHNY2009DE02281

PATIENT
  Age: 47 Year
  Sex: Female
  Weight: 63 kg

DRUGS (3)
  1. NICOTINE [Suspect]
     Indication: SMOKING CESSATION THERAPY
     Dosage: 4 MG, 15 GUMS DAILY, CHEWED
     Dates: start: 20060101
  2. NICOTINE [Suspect]
     Indication: SMOKING CESSATION THERAPY
     Dosage: CHEWED; UP TO 15 GUMS DAILY, CHEWED; 2MG, 12 5 GUMS DAILY, CHEWED
  3. NICORETTE ^HOECHST MARION ROUSSEL^ (NICOTINE) [Concomitant]

REACTIONS (16)
  - ACTIVITIES OF DAILY LIVING IMPAIRED [None]
  - AGGRESSION [None]
  - APHTHOUS STOMATITIS [None]
  - DEPRESSED MOOD [None]
  - DISTURBANCE IN ATTENTION [None]
  - DIZZINESS [None]
  - DRUG DEPENDENCE [None]
  - HEADACHE [None]
  - NERVOUSNESS [None]
  - NICOTINE DEPENDENCE [None]
  - PALLOR [None]
  - SPEECH DISORDER [None]
  - STOMATITIS [None]
  - SUICIDAL IDEATION [None]
  - VISUAL IMPAIRMENT [None]
  - WITHDRAWAL SYNDROME [None]
